FAERS Safety Report 7776365-X (Version None)
Quarter: 2011Q3

REPORT INFORMATION
  Report Type: 
  Country: None (occurrence: None)
  Receive Date: 20110921
  Receipt Date: 20110921
  Transmission Date: 20111222
  Serious: No
  Sender: FDA-Public Use
  Company Number: None

PATIENT

DRUGS (1)
  1. COSOPT [Suspect]
     Indication: GLAUCOMA
     Dosage: COSOPT BID OU
     Route: 047
     Dates: start: 20110211, end: 20110919

REACTIONS (1)
  - DRUG INEFFECTIVE [None]
